FAERS Safety Report 10891147 (Version 1)
Quarter: 2015Q1

REPORT INFORMATION
  Report Type: Spontaneous
  Country: US (occurrence: US)
  Receive Date: 20150305
  Receipt Date: 20150305
  Transmission Date: 20150721
  Serious: Yes (Hospitalization, Other)
  Sender: FDA-Public Use
  Company Number: US-BAXTER-2015BAX005694

PATIENT
  Age: 90 Year
  Sex: Female

DRUGS (1)
  1. DIANEAL LOW CALCIUM PERITONEAL DIALYSIS SOLUTION WITH DEXTROSE [Suspect]
     Active Substance: CALCIUM CHLORIDE\DEXTROSE\MAGNESIUM CHLORIDE\SODIUM CHLORIDE\SODIUM LACTATE
     Indication: CHRONIC KIDNEY DISEASE
     Route: 033
     Dates: start: 201303

REACTIONS (10)
  - Urinary tract infection bacterial [Not Recovered/Not Resolved]
  - Somnolence [Recovering/Resolving]
  - Fatigue [Recovering/Resolving]
  - Urine output increased [Not Recovered/Not Resolved]
  - Dehydration [Recovered/Resolved with Sequelae]
  - Incontinence [Not Recovered/Not Resolved]
  - Blood potassium decreased [Unknown]
  - Hypophagia [Recovering/Resolving]
  - Gait disturbance [Recovering/Resolving]
  - Diarrhoea [Recovered/Resolved with Sequelae]

NARRATIVE: CASE EVENT DATE: 2014
